FAERS Safety Report 8239444-9 (Version None)
Quarter: 2012Q1

REPORT INFORMATION
  Report Type: 
  Country: None (occurrence: None)
  Receive Date: 20120326
  Receipt Date: 20120313
  Transmission Date: 20120608
  Serious: Yes (Death)
  Sender: FDA-Public Use
  Company Number: 2012DE0099

PATIENT
  Age: 73 Year
  Sex: Female

DRUGS (3)
  1. ANAKINRA (ANAKINRA) [Suspect]
     Dates: start: 20030201
  2. LEF (LEF) ??/NOV/2001 - UNK [Concomitant]
  3. ENBREL (ETANERCEPT) UNK - 09/OCT/2006 [Concomitant]

REACTIONS (1)
  - DEATH [None]
